FAERS Safety Report 18955940 (Version 2)
Quarter: 2021Q1

REPORT INFORMATION
  Report Type: Spontaneous
  Country: PL (occurrence: PL)
  Receive Date: 20210301
  Receipt Date: 20210310
  Transmission Date: 20210420
  Serious: Yes (Death)
  Sender: FDA-Public Use
  Company Number: PL-BIOGEN-2021BI00984444

PATIENT
  Age: 13 Year
  Sex: Female

DRUGS (2)
  1. RISDIPLAM. [Concomitant]
     Active Substance: RISDIPLAM
     Indication: SPINAL MUSCULAR ATROPHY
     Route: 065
     Dates: end: 202009
  2. SPINRAZA [Suspect]
     Active Substance: NUSINERSEN
     Indication: SPINAL MUSCULAR ATROPHY
     Dosage: 5 DOSES
     Route: 065
     Dates: end: 202004

REACTIONS (1)
  - Spinal muscular atrophy [Fatal]
